FAERS Safety Report 25779867 (Version 1)
Quarter: 2025Q3

REPORT INFORMATION
  Report Type: Spontaneous
  Country: US (occurrence: None)
  Receive Date: 20250908
  Receipt Date: 20250908
  Transmission Date: 20251021
  Serious: Yes (Other)
  Sender: FDA-CTU
  Company Number: None

PATIENT
  Age: 70 Year
  Sex: Male
  Weight: 72 kg

DRUGS (6)
  1. ELIQUIS [Suspect]
     Active Substance: APIXABAN
     Indication: Atrial fibrillation
     Dosage: OTHER QUANTITY : 180 TABLET(S);?FREQUENCY : TWICE A DAY;?
     Route: 048
     Dates: start: 20190930, end: 20250905
  2. DEVICE [Concomitant]
     Active Substance: DEVICE
  3. ROSUVASTATIN [Concomitant]
     Active Substance: ROSUVASTATIN
  4. ELIQUIS 5MG TWICE DAILY [Concomitant]
     Dosage: FREQUENCY : TWICE A DAY;?
  5. PROBIOTICS NOS [Concomitant]
     Active Substance: PROBIOTICS NOS
  6. TYLENOL [Concomitant]
     Active Substance: ACETAMINOPHEN

REACTIONS (2)
  - Drug hypersensitivity [None]
  - Suspected product quality issue [None]

NARRATIVE: CASE EVENT DATE: 20250905
